FAERS Safety Report 14208343 (Version 1)
Quarter: 2017Q4

REPORT INFORMATION
  Report Type: Spontaneous
  Country: US (occurrence: US)
  Receive Date: 20171121
  Receipt Date: 20171121
  Transmission Date: 20180321
  Serious: Yes (Other)
  Sender: FDA-Public Use
  Company Number: US-TARO PHARMACEUTICALS USA.,INC-2017SUN00391

PATIENT
  Age: 61 Year
  Sex: Female

DRUGS (2)
  1. WARFARIN [Suspect]
     Active Substance: WARFARIN
     Indication: ANTICOAGULANT THERAPY
     Dosage: UNK, DAILY
     Route: 065
  2. ASPIRIN. [Suspect]
     Active Substance: ASPIRIN
     Indication: PRODUCT USED FOR UNKNOWN INDICATION
     Dosage: 81 MG, UNK
     Route: 065

REACTIONS (5)
  - Eye haemorrhage [Recovered/Resolved]
  - Lacrimal haemorrhage [Recovered/Resolved]
  - Device dislocation [Recovered/Resolved]
  - International normalised ratio increased [Recovered/Resolved]
  - Implant site erosion [Recovered/Resolved]
